FAERS Safety Report 4341048-5 (Version None)
Quarter: 2004Q2

REPORT INFORMATION
  Report Type: 
  Country: None (occurrence: None)
  Receive Date: 20040419
  Receipt Date: 20040316
  Transmission Date: 20050107
  Serious: Yes (Life-Threatening, Disabling, Other)
  Sender: FDA-Public Use
  Company Number: JP-MERCK-0403USA01721

PATIENT
  Age: 66 Year
  Sex: Male

DRUGS (13)
  1. [THERAPY UNSPECIFIED] [Concomitant]
     Route: 048
     Dates: start: 20040305
  2. [THERAPY UNSPECIFIED] [Concomitant]
     Route: 048
     Dates: start: 20040306, end: 20040317
  3. ALBUMIN TANNATE [Concomitant]
     Route: 048
     Dates: start: 20040226, end: 20040308
  4. AMLODIPINE [Concomitant]
     Route: 048
     Dates: start: 20000101
  5. FUNGIZONE [Concomitant]
     Route: 048
     Dates: start: 20040306, end: 20040317
  6. ROCALTROL [Concomitant]
     Route: 048
     Dates: start: 20000101
  7. CALCIUM CARBONATE [Concomitant]
     Route: 048
     Dates: start: 20040304
  8. PEPCID [Suspect]
     Indication: ANAEMIA
     Route: 048
     Dates: start: 20040220, end: 20040308
  9. LASIX [Concomitant]
     Route: 048
     Dates: start: 20040221, end: 20040227
  10. FLUITRAN [Concomitant]
     Route: 048
     Dates: start: 20040221, end: 20040227
  11. DIOVAN [Concomitant]
     Route: 048
     Dates: start: 20040328
  12. VANCOMYCIN [Concomitant]
     Route: 048
     Dates: start: 20040301, end: 20040303
  13. VITAMEDIN [Concomitant]
     Route: 048
     Dates: start: 20040220, end: 20040308

REACTIONS (3)
  - AGRANULOCYTOSIS [None]
  - APLASIA PURE RED CELL [None]
  - LYMPHOCYTE STIMULATION TEST POSITIVE [None]
